FAERS Safety Report 10210108 (Version 1)
Quarter: 2014Q2

REPORT INFORMATION
  Report Type: Spontaneous
  Country: CH (occurrence: CH)
  Receive Date: 20140602
  Receipt Date: 20140602
  Transmission Date: 20141212
  Serious: Yes (Other)
  Sender: FDA-Public Use
  Company Number: CH-JNJFOC-20140518380

PATIENT
  Age: 53 Year
  Sex: Male

DRUGS (9)
  1. TRAMAL [Suspect]
     Indication: PRODUCT USED FOR UNKNOWN INDICATION
     Route: 048
     Dates: start: 20140310
  2. NOVALGIN [Suspect]
     Indication: PRODUCT USED FOR UNKNOWN INDICATION
     Route: 048
     Dates: start: 20140310, end: 20140318
  3. SIRDALUD [Suspect]
     Indication: PRODUCT USED FOR UNKNOWN INDICATION
     Route: 048
     Dates: start: 20140310
  4. DUPHALAC [Concomitant]
     Route: 065
  5. IMOVANE [Concomitant]
     Route: 065
  6. PANTOZOL [Concomitant]
     Route: 065
  7. CIPRALEX [Concomitant]
     Route: 065
  8. INDERAL [Concomitant]
     Route: 065
  9. ALDACTONE [Concomitant]
     Route: 065

REACTIONS (2)
  - Neutropenia [Recovered/Resolved]
  - Leukopenia [Recovering/Resolving]
